FAERS Safety Report 14334054 (Version 1)
Quarter: 2017Q4

REPORT INFORMATION
  Report Type: Spontaneous
  Country: US (occurrence: US)
  Receive Date: 20171228
  Receipt Date: 20171228
  Transmission Date: 20180321
  Serious: No
  Sender: FDA-Public Use
  Company Number: US-BAYER-2017-249175

PATIENT
  Sex: Female
  Weight: 39 kg

DRUGS (8)
  1. MIRALAX [Suspect]
     Active Substance: POLYETHYLENE GLYCOL 3350
     Indication: GASTROINTESTINAL DISORDER
     Dosage: 1 DOSE
     Route: 048
  2. PLAVIX [Concomitant]
     Active Substance: CLOPIDOGREL BISULFATE
  3. DISOPYRAMIDE [Concomitant]
     Active Substance: DISOPYRAMIDE
  4. IRON SUPPLEMENT [Concomitant]
     Active Substance: IRON
  5. METOPROLOL. [Concomitant]
     Active Substance: METOPROLOL
  6. RANITIDINE. [Concomitant]
     Active Substance: RANITIDINE
  7. PANTOPRAZOLE [Concomitant]
     Active Substance: PANTOPRAZOLE
  8. LIPITOR [Concomitant]
     Active Substance: ATORVASTATIN CALCIUM

REACTIONS (2)
  - Sleep disorder [Not Recovered/Not Resolved]
  - Insomnia [Unknown]
